FAERS Safety Report 22249840 (Version 1)
Quarter: 2023Q2

REPORT INFORMATION
  Report Type: Spontaneous
  Country: US (occurrence: None)
  Receive Date: 20230424
  Receipt Date: 20230424
  Transmission Date: 20230721
  Serious: No
  Sender: FDA-Public Use
  Company Number: None

PATIENT
  Age: 40 Year
  Sex: Male
  Weight: 92.25 kg

DRUGS (1)
  1. DUPIXENT [Suspect]
     Active Substance: DUPILUMAB
     Indication: Eczema
     Dosage: FREQUENCY : EVERY OTHER WEEK;?
     Route: 058
     Dates: start: 20220928

REACTIONS (5)
  - Eye infection [None]
  - Oral herpes [None]
  - Vision blurred [None]
  - Ocular hyperaemia [None]
  - Lacrimation increased [None]

NARRATIVE: CASE EVENT DATE: 20230417
